FAERS Safety Report 8010649-5 (Version None)
Quarter: 2011Q4

REPORT INFORMATION
  Report Type: 
  Country: None (occurrence: None)
  Receive Date: 20111228
  Receipt Date: 20111227
  Transmission Date: 20120403
  Serious: Yes (Other)
  Sender: FDA-Public Use
  Company Number: PHEH2007US05484

PATIENT
  Sex: Male

DRUGS (24)
  1. CASODEX [Concomitant]
     Dosage: 50 MG, UNK
     Dates: start: 19970101
  2. GEMFIBROZIL [Concomitant]
     Dosage: 600 MG, UNK
     Dates: start: 20030101
  3. LUPRON [Concomitant]
  4. VICOPROFEN [Concomitant]
     Dosage: 7.5 MG, UNK
     Dates: start: 20020101
  5. VYTORIN [Concomitant]
     Dosage: 10 MG, UNK
     Dates: start: 20050101
  6. CHLORHEXIDINE GLUCONATE [Concomitant]
     Dates: start: 20060101
  7. OXYCODONE HCL [Concomitant]
  8. GLUCOVANCE [Concomitant]
     Dosage: 2.5 MG, UNK
     Dates: start: 20020101
  9. VICODIN [Concomitant]
  10. SENOKOT                                 /UNK/ [Concomitant]
  11. INSULIN [Concomitant]
  12. PENICILLIN VK [Concomitant]
     Dosage: 500 MG, UNK
     Dates: start: 19970101
  13. GLYBURIDE AND METFORMIN HCL [Concomitant]
     Dates: start: 20040101
  14. ZOLADEX [Concomitant]
  15. UNASYN [Concomitant]
  16. GLUCOPHAGE [Concomitant]
  17. FLORINEF [Concomitant]
  18. FERROUS SULFATE TAB [Concomitant]
  19. ZOMETA [Suspect]
     Dosage: 4 MG, QMO
     Dates: start: 20030819
  20. AUGMENTIN '125' [Concomitant]
     Dosage: 875 MG, UNK
     Dates: start: 19990101
  21. CATAPRES-TTS-3 [Concomitant]
     Dates: start: 19970101
  22. AREDIA [Suspect]
  23. HYDROCODONE BITARTRATE AND ACETAMINOPHEN [Concomitant]
     Dates: start: 19970101
  24. METHOCARBAMOL [Concomitant]
     Dosage: 750 MG, UNK
     Dates: start: 20020101

REACTIONS (51)
  - INJURY [None]
  - ORTHOSTATIC HYPOTENSION [None]
  - DEPRESSION [None]
  - PARAESTHESIA [None]
  - DIZZINESS [None]
  - ECZEMA [None]
  - HYPOGLYCAEMIA [None]
  - OSTEITIS [None]
  - HEADACHE [None]
  - HOT FLUSH [None]
  - LIGAMENT SPRAIN [None]
  - OSTEONECROSIS OF JAW [None]
  - ANXIETY [None]
  - CHRONIC SINUSITIS [None]
  - CHOLELITHIASIS [None]
  - ASTIGMATISM [None]
  - PLEURAL EFFUSION [None]
  - PULMONARY OEDEMA [None]
  - OTITIS MEDIA [None]
  - CONTUSION [None]
  - FACIAL PAIN [None]
  - MIGRAINE [None]
  - HYPOAESTHESIA [None]
  - WEIGHT DECREASED [None]
  - DILATATION ATRIAL [None]
  - OSTEOMYELITIS [None]
  - ASTHMA [None]
  - SYNCOPE [None]
  - CONFUSIONAL STATE [None]
  - EMPHYSEMA [None]
  - BACK PAIN [None]
  - LIBIDO DECREASED [None]
  - BLOOD URINE PRESENT [None]
  - PRESBYOPIA [None]
  - OSTEOPOROSIS [None]
  - RIB FRACTURE [None]
  - PAIN [None]
  - ANAEMIA [None]
  - HEAD INJURY [None]
  - FATIGUE [None]
  - MYOPIA [None]
  - EXPOSED BONE IN JAW [None]
  - UPPER RESPIRATORY TRACT INFECTION [None]
  - PERIODONTAL INFECTION [None]
  - LOSS OF CONSCIOUSNESS [None]
  - HEPATITIS [None]
  - ASTHENIA [None]
  - BONE LESION [None]
  - HAEMATURIA [None]
  - ACTINOMYCOSIS [None]
  - TOOTH LOSS [None]
